FAERS Safety Report 14688441 (Version 1)
Quarter: 2018Q1

REPORT INFORMATION
  Report Type: Report from Study
  Country: None (occurrence: DE)
  Receive Date: 20180328
  Receipt Date: 20180328
  Transmission Date: 20180509
  Serious: Yes (Hospitalization, Other)
  Sender: FDA-Public Use
  Company Number: DE-ABBVIE-18K-062-2298083-00

PATIENT
  Age: 36 Year
  Sex: Female
  Weight: 133 kg

DRUGS (6)
  1. IBUPROFEN. [Concomitant]
     Active Substance: IBUPROFEN
     Indication: PRODUCT USED FOR UNKNOWN INDICATION
     Dosage: WHEN NEEDED
  2. OMEPRAZOL [Concomitant]
     Active Substance: OMEPRAZOLE
     Indication: PRODUCT USED FOR UNKNOWN INDICATION
  3. FRAGMIN [Concomitant]
     Active Substance: DALTEPARIN SODIUM
     Indication: THROMBOSIS PROPHYLAXIS
     Route: 058
     Dates: start: 2018
  4. HUMIRA [Suspect]
     Active Substance: ADALIMUMAB
     Indication: PSORIATIC ARTHROPATHY
     Route: 058
     Dates: start: 20170301, end: 20171127
  5. METAMIZOL [Concomitant]
     Active Substance: METAMIZOLE SODIUM
     Indication: PRODUCT USED FOR UNKNOWN INDICATION
     Dosage: WHEN NEEDED
  6. VENLAFAXIN [Concomitant]
     Active Substance: VENLAFAXINE HYDROCHLORIDE
     Indication: PRODUCT USED FOR UNKNOWN INDICATION

REACTIONS (24)
  - Intervertebral discitis [Recovered/Resolved]
  - Dysstasia [Unknown]
  - Wound complication [Unknown]
  - Mobility decreased [Unknown]
  - Wound haemorrhage [Unknown]
  - Purulence [Unknown]
  - Streptococcal infection [Unknown]
  - Monoparesis [Unknown]
  - Intervertebral disc space narrowing [Unknown]
  - Haematoma infection [Unknown]
  - Subcutaneous abscess [Recovered/Resolved]
  - Sciatica [Unknown]
  - Inflammation [Recovered/Resolved]
  - Intervertebral disc protrusion [Recovered/Resolved]
  - Post procedural haematoma [Unknown]
  - Inflammatory marker increased [Unknown]
  - Nerve root compression [Unknown]
  - Pyrexia [Recovered/Resolved]
  - Hypoaesthesia [Unknown]
  - Post procedural complication [Recovered/Resolved]
  - Back pain [Recovered/Resolved]
  - Wound complication [Unknown]
  - Staphylococcal infection [Unknown]
  - Gait disturbance [Unknown]

NARRATIVE: CASE EVENT DATE: 20171224
